FAERS Safety Report 8651867 (Version 4)
Quarter: 2012Q4

REPORT INFORMATION
  Report Type: 
  Country: JP (occurrence: JP)
  Receive Date: 20120706
  Receipt Date: 20121127
  Transmission Date: 20130627
  Serious: Yes (Hospitalization)
  Sender: FDA-Public Use
  Company Number: JP-JNJFOC-20120602568

PATIENT
  Age: 74 None
  Sex: Female

DRUGS (13)
  1. TRAMCET [Suspect]
     Indication: PAIN
     Dosage: 1 per day
     Route: 048
     Dates: start: 20120525, end: 20120528
  2. TRAMCET [Suspect]
     Indication: PAIN
     Dosage: 1 per day
     Route: 048
     Dates: start: 20120510, end: 20120524
  3. MICAMLO [Concomitant]
     Indication: HYPERTENSION
     Route: 048
  4. NEUTROGIN [Concomitant]
     Dosage: 1 per 1 day
     Route: 065
  5. PRIMPERAN [Concomitant]
     Indication: GASTRITIS
     Dosage: 1 per 1 day
     Route: 048
     Dates: start: 20120510, end: 20120524
  6. PRIMPERAN [Concomitant]
     Indication: NAUSEA
     Dosage: 1 per 1 day
     Route: 048
     Dates: start: 20120510, end: 20120524
  7. NEUROTROPIN [Concomitant]
     Indication: LUMBAR SPINAL STENOSIS
     Dosage: 1 per 1 day
     Route: 048
     Dates: start: 20050106, end: 20120528
  8. MUCOSTA [Concomitant]
     Indication: GASTRITIS
     Dosage: 1 per 1 day
     Route: 048
     Dates: end: 20120528
  9. LASIX [Concomitant]
     Indication: HYPERTENSION
     Dosage: 1 per 1 day
     Route: 048
     Dates: start: 20120412, end: 20120528
  10. PREMINENT [Concomitant]
     Indication: HYPERTENSION
     Dosage: 1 per 1 day
     Route: 048
     Dates: start: 20091109, end: 20120528
  11. CADUET [Concomitant]
     Indication: HYPERTENSION
     Dosage: 1 per 1 day
     Route: 048
     Dates: start: 20110705, end: 20120528
  12. AROFUTO [Concomitant]
     Indication: LUMBAR SPINAL STENOSIS
     Dosage: 1 per 1 day
     Route: 048
     Dates: start: 20110118, end: 20120528
  13. FAMOTIDINE [Concomitant]
     Indication: GASTROOESOPHAGEAL REFLUX DISEASE
     Dosage: 1 per 1 day
     Route: 048
     Dates: end: 20120528

REACTIONS (6)
  - Dehydration [Unknown]
  - Nausea [Recovered/Resolved]
  - Hypoaesthesia [Recovered/Resolved]
  - Hypoaesthesia [Recovered/Resolved]
  - Facial spasm [Recovered/Resolved]
  - Dysarthria [Recovered/Resolved]
